FAERS Safety Report 6706915-3 (Version None)
Quarter: 2010Q2

REPORT INFORMATION
  Report Type: 
  Country: None (occurrence: None)
  Receive Date: 20100503
  Receipt Date: 20100421
  Transmission Date: 20101027
  Serious: Yes (Hospitalization)
  Sender: FDA-Public Use
  Company Number: US-PFIZER INC-2010049945

PATIENT
  Sex: Female
  Weight: 79.7 kg

DRUGS (8)
  1. EXEMESTANE [Suspect]
     Indication: BREAST CANCER
     Dosage: DAILY
     Route: 048
     Dates: start: 20100309
  2. CP-751,871 [Suspect]
     Indication: BREAST CANCER
     Dosage: 20 MG/KG, EVERY 3 WEEKS
     Route: 042
     Dates: start: 20100309
  3. CELEXA [Suspect]
     Dosage: UNK
     Route: 048
  4. FENTANYL [Concomitant]
     Dosage: UNK
     Route: 062
     Dates: start: 20100330
  5. LISINOPRIL [Concomitant]
     Dosage: UNK
     Route: 048
     Dates: start: 20100304
  6. OXYCODONE [Concomitant]
     Dosage: UNK
     Route: 048
     Dates: start: 20100330
  7. SIMVASTATIN [Concomitant]
     Dosage: UNK
     Route: 048
     Dates: start: 20100309
  8. ACYCLOVIR [Concomitant]
     Dosage: UNK
     Route: 061
     Dates: start: 20100330

REACTIONS (3)
  - HYPERGLYCAEMIA [None]
  - NAUSEA [None]
  - VOMITING [None]
